FAERS Safety Report 7869137-9 (Version None)
Quarter: 2011Q4

REPORT INFORMATION
  Report Type: 
  Country: None (occurrence: None)
  Receive Date: 20111021
  Receipt Date: 20111010
  Transmission Date: 20120403
  Serious: Yes (Other)
  Sender: FDA-Public Use
  Company Number: 2011SP048660

PATIENT
  Sex: Female

DRUGS (1)
  1. CLARITIN-D 24 HOUR [Suspect]
     Indication: PRODUCT USED FOR UNKNOWN INDICATION
     Dosage: 10 MG;UNK;PO
     Route: 048

REACTIONS (3)
  - CYANOSIS [None]
  - OXYGEN SATURATION DECREASED [None]
  - HYPOAESTHESIA [None]
